FAERS Safety Report 9385617 (Version 2)
Quarter: 2013Q3

REPORT INFORMATION
  Report Type: Spontaneous
  Country: US (occurrence: US)
  Receive Date: 20130705
  Receipt Date: 20130905
  Transmission Date: 20140515
  Serious: Yes (Other)
  Sender: FDA-Public Use
  Company Number: US-GLAXOSMITHKLINE-A1030467A

PATIENT
  Age: 65 Year
  Sex: Male

DRUGS (2)
  1. PROMACTA [Suspect]
     Indication: THROMBOCYTOPENIA
     Dosage: 25MG UNKNOWN
     Route: 065
  2. UNSPECIFIED MEDICATIONS [Concomitant]
     Indication: HEPATITIS C

REACTIONS (3)
  - Chemotherapy [Unknown]
  - Therapy cessation [Unknown]
  - Adverse event [Unknown]
